FAERS Safety Report 6448819-X (Version None)
Quarter: 2009Q4

REPORT INFORMATION
  Report Type: 
  Country: None (occurrence: None)
  Receive Date: 20091119
  Receipt Date: 20091119
  Transmission Date: 20100525
  Serious: No
  Sender: FDA-Public Use
  Company Number: None

PATIENT

DRUGS (3)
  1. LIDODERM [Suspect]
     Indication: LUNG DISORDER
     Dosage: 5% ONCE OTHER
     Route: 050
     Dates: start: 20091116, end: 20091117
  2. LIDODERM [Suspect]
     Indication: MUSCLE DISORDER
     Dosage: 5% ONCE OTHER
     Route: 050
     Dates: start: 20091116, end: 20091117
  3. LIDODERM [Suspect]
     Indication: PAIN
     Dosage: 5% ONCE OTHER
     Route: 050
     Dates: start: 20091116, end: 20091117

REACTIONS (7)
  - DIZZINESS [None]
  - INCORRECT DRUG ADMINISTRATION DURATION [None]
  - MOVEMENT DISORDER [None]
  - MUSCLE DISORDER [None]
  - OEDEMA PERIPHERAL [None]
  - SOMNOLENCE [None]
  - VOMITING [None]
